FAERS Safety Report 6264511-9 (Version None)
Quarter: 2009Q3

REPORT INFORMATION
  Report Type: 
  Country: None (occurrence: None)
  Receive Date: 20090710
  Receipt Date: 20090706
  Transmission Date: 20100115
  Serious: Yes (Other)
  Sender: FDA-Public Use
  Company Number: US-ABBOTT-09P-163-0582562-00

PATIENT
  Sex: Female
  Weight: 77.18 kg

DRUGS (6)
  1. HUMIRA [Suspect]
     Indication: RHEUMATOID ARTHRITIS
     Route: 058
     Dates: start: 20081229, end: 20090420
  2. HUMIRA [Suspect]
     Route: 058
     Dates: start: 20090515, end: 20090613
  3. HUMIRA [Suspect]
     Dates: start: 20090703
  4. METHOTREXATE [Concomitant]
     Indication: DRUG USE FOR UNKNOWN INDICATION
     Dates: start: 20081229, end: 20090620
  5. PERCOCET [Concomitant]
     Indication: DRUG USE FOR UNKNOWN INDICATION
  6. VALIUM [Concomitant]
     Indication: DRUG USE FOR UNKNOWN INDICATION
     Dosage: AS NEEDED AT BEDTIME

REACTIONS (9)
  - ARTHRALGIA [None]
  - DRUG INEFFECTIVE [None]
  - INSOMNIA [None]
  - JOINT STIFFNESS [None]
  - LOSS OF CONSCIOUSNESS [None]
  - NODULE ON EXTREMITY [None]
  - PAIN [None]
  - VERTIGO [None]
  - WEIGHT DECREASED [None]
